FAERS Safety Report 7520059-2 (Version None)
Quarter: 2011Q2

REPORT INFORMATION
  Report Type: 
  Country: None (occurrence: None)
  Receive Date: 20110602
  Receipt Date: 20110526
  Transmission Date: 20111010
  Serious: Yes (Congenital Anomaly, Other)
  Sender: FDA-Public Use
  Company Number: CH-PFIZER INC-2011113762

PATIENT

DRUGS (4)
  1. METHOTREXATE SODIUM [Suspect]
     Dosage: 5 MG, UNK
     Route: 064
     Dates: start: 20100804, end: 20100804
  2. FOLIC ACID [Concomitant]
     Dosage: 5 MG, 1X/DAY
     Route: 064
     Dates: start: 20100804, end: 20110501
  3. SULFASALAZINE [Suspect]
     Dosage: 1000 MG, 1X/DAY
     Route: 064
     Dates: start: 20101202
  4. SULFASALAZINE [Suspect]
     Dosage: 2000 MG, 1X/DAY
     Route: 064
     Dates: start: 20100804, end: 20101202

REACTIONS (3)
  - DRUG EXPOSURE DURING PREGNANCY [None]
  - RENAL APLASIA [None]
  - VENTRICULAR SEPTAL DEFECT [None]
